FAERS Safety Report 5936303-9 (Version None)
Quarter: 2008Q4

REPORT INFORMATION
  Report Type: 
  Country: None (occurrence: None)
  Receive Date: 20081030
  Receipt Date: 20081023
  Transmission Date: 20090506
  Serious: Yes (Death, Hospitalization)
  Sender: FDA-Public Use
  Company Number: TW-AVENTIS-200820083GDDC

PATIENT

DRUGS (4)
  1. RIFATER [Suspect]
     Indication: TUBERCULOSIS
     Route: 048
     Dates: start: 20061215
  2. RIFATER [Suspect]
     Indication: MENINGITIS
     Route: 048
     Dates: start: 20061215
  3. ETHAMBUTOL HYDROCHLORIDE [Suspect]
     Indication: TUBERCULOSIS
     Route: 048
  4. ETHAMBUTOL HYDROCHLORIDE [Suspect]
     Indication: MENINGITIS
     Route: 048

REACTIONS (1)
  - TOXIC EPIDERMAL NECROLYSIS [None]
